FAERS Safety Report 9336966 (Version 4)
Quarter: 2013Q3

REPORT INFORMATION
  Report Type: Report from Study
  Country: US (occurrence: US)
  Receive Date: 20130607
  Receipt Date: 20130823
  Transmission Date: 20140515
  Serious: Yes (Death, Hospitalization, Other)
  Sender: FDA-Public Use
  Company Number: US-BRISTOL-MYERS SQUIBB COMPANY-18978239

PATIENT
  Sex: Male
  Weight: 69.84 kg

DRUGS (10)
  1. IPILIMUMAB [Suspect]
     Indication: PROSTATE CANCER
     Dosage: TOTAL DOSE: 772MG
     Route: 042
     Dates: start: 20130213
  2. LUPRON [Suspect]
     Indication: PROSTATE CANCER
     Route: 030
     Dates: start: 20130207
  3. ADVAIR [Concomitant]
     Dosage: INHALER
  4. REMERON [Concomitant]
  5. LOVENOX [Concomitant]
  6. CLARITIN [Concomitant]
  7. CLARITIN [Concomitant]
  8. SCOPOLAMINE [Concomitant]
     Dosage: PATCH
  9. LASIX [Concomitant]
     Route: 042
  10. REMICADE [Concomitant]
     Route: 042
     Dates: start: 20130529

REACTIONS (6)
  - Pneumonia [Fatal]
  - Prostate cancer metastatic [Fatal]
  - Dehydration [Unknown]
  - Colitis [Unknown]
  - Hypoalbuminaemia [Not Recovered/Not Resolved]
  - Deep vein thrombosis [Unknown]
